FAERS Safety Report 6292532-9 (Version None)
Quarter: 2009Q3

REPORT INFORMATION
  Report Type: 
  Country: None (occurrence: None)
  Receive Date: 20090731
  Receipt Date: 20090608
  Transmission Date: 20100115
  Serious: Yes (Hospitalization, Other)
  Sender: FDA-Public Use
  Company Number: US-PURDUE-USA-2009-0039058

PATIENT
  Sex: Male
  Weight: 64.399 kg

DRUGS (2)
  1. OXYCONTIN [Suspect]
     Indication: BACK PAIN
     Dosage: 80 MG, UNK
     Dates: start: 20020604, end: 20030227
  2. OXYCONTIN [Suspect]
     Indication: ANALGESIA

REACTIONS (6)
  - ASTHENIA [None]
  - HYPERHIDROSIS [None]
  - INSOMNIA [None]
  - NERVOUSNESS [None]
  - SUICIDAL IDEATION [None]
  - THINKING ABNORMAL [None]
